FAERS Safety Report 25260745 (Version 2)
Quarter: 2025Q2

REPORT INFORMATION
  Report Type: Spontaneous
  Country: CN (occurrence: CN)
  Receive Date: 20250501
  Receipt Date: 20250510
  Transmission Date: 20250717
  Serious: Yes (Hospitalization, Other)
  Sender: NOVO NORDISK
  Company Number: CN-NOVOPROD-1409594

PATIENT
  Age: 37 Year
  Sex: Male
  Weight: 55 kg

DRUGS (2)
  1. NOVORAPID [Suspect]
     Active Substance: INSULIN ASPART
     Indication: Product used for unknown indication
  2. NOVORAPID [Suspect]
     Active Substance: INSULIN ASPART

REACTIONS (4)
  - Malaise [Recovered/Resolved]
  - Diabetic nephropathy [Not Recovered/Not Resolved]
  - Blood glucose decreased [Recovered/Resolved]
  - Diabetic retinopathy [Not Recovered/Not Resolved]

NARRATIVE: CASE EVENT DATE: 20240301
